FAERS Safety Report 22870190 (Version 2)
Quarter: 2024Q3

REPORT INFORMATION
  Report Type: Spontaneous
  Country: CA (occurrence: CA)
  Receive Date: 20230827
  Receipt Date: 20240828
  Transmission Date: 20241017
  Serious: Yes (Death, Other)
  Sender: AUROBINDO
  Company Number: CA-AUROBINDO-AUR-APL-2023-055139

PATIENT
  Age: 31 Year
  Sex: Male

DRUGS (8)
  1. ONDANSETRON [Suspect]
     Active Substance: ONDANSETRON
     Indication: Vomiting
     Dosage: 8 MILLIGRAM, ONCE A DAY
     Route: 042
  2. ONDANSETRON [Suspect]
     Active Substance: ONDANSETRON
     Indication: Nausea
  3. ONDANSETRON [Suspect]
     Active Substance: ONDANSETRON
     Indication: Diabetic ketoacidosis
  4. ONDANSETRON [Suspect]
     Active Substance: ONDANSETRON
     Indication: Abdominal pain
  5. GRAVOL [Concomitant]
     Active Substance: DIMENHYDRINATE
     Indication: Product used for unknown indication
     Dosage: UNK
     Route: 065
  6. INSULIN NOS [Concomitant]
     Active Substance: INSULIN NOS
     Indication: Product used for unknown indication
     Dosage: UNK
     Route: 065
  7. MORPHINE [Concomitant]
     Active Substance: MORPHINE
     Indication: Product used for unknown indication
     Dosage: UNK
     Route: 065
  8. TYLENOL [Concomitant]
     Active Substance: ACETAMINOPHEN
     Indication: Product used for unknown indication
     Dosage: UNK
     Route: 065

REACTIONS (5)
  - Cardiac arrest [Fatal]
  - Cardio-respiratory arrest [Fatal]
  - Pulseless electrical activity [Fatal]
  - Ventricular fibrillation [Fatal]
  - Tachycardia [Fatal]
